FAERS Safety Report 10356487 (Version 1)
Quarter: 2014Q3

REPORT INFORMATION
  Report Type: Spontaneous
  Country: US (occurrence: None)
  Receive Date: 20140730
  Receipt Date: 20140730
  Transmission Date: 20150326
  Serious: Yes (Hospitalization)
  Sender: FDA-Public Use
  Company Number: None

PATIENT
  Age: 53 Year
  Sex: Male
  Weight: 122.3 kg

DRUGS (2)
  1. METOPROLOL [Suspect]
     Active Substance: METOPROLOL
     Indication: CARDIAC FAILURE CONGESTIVE
     Route: 048
     Dates: start: 20140219
  2. BUMETANIDE. [Suspect]
     Active Substance: BUMETANIDE
     Route: 048
     Dates: start: 20140219

REACTIONS (3)
  - Fall [None]
  - Blood pressure systolic decreased [None]
  - Syncope [None]

NARRATIVE: CASE EVENT DATE: 20140222
